FAERS Safety Report 12376654 (Version 2)
Quarter: 2016Q2

REPORT INFORMATION
  Report Type: Report from Study
  Country: US (occurrence: US)
  Receive Date: 20160517
  Receipt Date: 20160517
  Transmission Date: 20160815
  Serious: No
  Sender: FDA-Public Use
  Company Number: US-MALLINCKRODT-T201502422

PATIENT
  Age: 59 Year
  Sex: Female

DRUGS (4)
  1. REPOSITORY CORTICOTROPIN INJECTION [Suspect]
     Active Substance: CORTICOTROPIN
     Dosage: 40 UNITS, TWICE A WEEK
     Route: 058
  2. REPOSITORY CORTICOTROPIN INJECTION [Suspect]
     Active Substance: CORTICOTROPIN
     Indication: SYSTEMIC LUPUS ERYTHEMATOSUS
     Dosage: 80 UNITS, TWICE A WEEK
     Route: 058
     Dates: start: 20140101
  3. REPOSITORY CORTICOTROPIN INJECTION [Suspect]
     Active Substance: CORTICOTROPIN
     Dosage: 80 UNITS 1X WEEKLY ON SATURDAY
     Route: 058
  4. PREDNISONE. [Concomitant]
     Active Substance: PREDNISONE
     Dosage: WEANED OFF

REACTIONS (10)
  - Fall [Unknown]
  - Joint injury [Unknown]
  - Skin irritation [Not Recovered/Not Resolved]
  - Foot fracture [Unknown]
  - Fatigue [Not Recovered/Not Resolved]
  - Arthralgia [Unknown]
  - Pain [Not Recovered/Not Resolved]
  - Weight decreased [Not Recovered/Not Resolved]
  - Drug dose omission [Recovered/Resolved]
  - Joint stiffness [Not Recovered/Not Resolved]

NARRATIVE: CASE EVENT DATE: 201604
